FAERS Safety Report 8615444-1 (Version None)
Quarter: 2012Q3

REPORT INFORMATION
  Report Type: 
  Country: None (occurrence: None)
  Receive Date: 20120823
  Receipt Date: 20120816
  Transmission Date: 20120928
  Serious: Yes (Hospitalization)
  Sender: FDA-Public Use
  Company Number: US-JNJFOC-20120808456

PATIENT
  Sex: Female
  Weight: 85.73 kg

DRUGS (1)
  1. XARELTO [Suspect]
     Indication: KNEE ARTHROPLASTY
     Route: 048
     Dates: start: 20120114, end: 20120118

REACTIONS (5)
  - ASTHENIA [None]
  - EATING DISORDER [None]
  - TRANSFUSION [None]
  - PRESYNCOPE [None]
  - DYSPNOEA [None]
